FAERS Safety Report 13226895 (Version 6)
Quarter: 2017Q1

REPORT INFORMATION
  Report Type: Spontaneous
  Country: JP (occurrence: JP)
  Receive Date: 20170213
  Receipt Date: 20170307
  Transmission Date: 20170428
  Serious: Yes (Hospitalization)
  Sender: FDA-Public Use
  Company Number: PHJP2017JP004758

PATIENT
  Age: 79 Year
  Sex: Male

DRUGS (1)
  1. VOLTAREN SUP [Suspect]
     Active Substance: DICLOFENAC SODIUM
     Indication: BACK PAIN
     Dosage: UNK
     Route: 054

REACTIONS (4)
  - Acute kidney injury [Recovered/Resolved]
  - Dyspnoea [Recovering/Resolving]
  - Anuria [Recovering/Resolving]
  - Pulmonary oedema [Recovered/Resolved]
